FAERS Safety Report 4823014-6 (Version None)
Quarter: 2005Q4

REPORT INFORMATION
  Report Type: 
  Country: None (occurrence: None)
  Receive Date: 20051104
  Receipt Date: 20051220
  Transmission Date: 20060501
  Serious: Yes (Hospitalization)
  Sender: FDA-Public Use
  Company Number: 2005S1010330

PATIENT
  Age: 38 Year
  Sex: Female

DRUGS (2)
  1. ARIPIPRAZOLE (15 MG) [Suspect]
     Indication: BIPOLAR I DISORDER
     Dosage: 15 MG;QD;PO
     Route: 048
     Dates: start: 20050912, end: 20051003
  2. HALOPERIDOL [Suspect]
     Indication: BIPOLAR I DISORDER
     Dosage: 5 MG;QD;ORAL
     Route: 048
     Dates: start: 20050912, end: 20051003

REACTIONS (2)
  - DISEASE RECURRENCE [None]
  - MANIA [None]
